FAERS Safety Report 15053190 (Version 2)
Quarter: 2018Q4

REPORT INFORMATION
  Report Type: Report from Study
  Country: JP (occurrence: JP)
  Receive Date: 20180622
  Receipt Date: 20181115
  Transmission Date: 20190204
  Serious: Yes (Other)
  Sender: FDA-Public Use
  Company Number: JP-SA-2018SA153610

PATIENT
  Age: 7 Year
  Sex: Male
  Weight: 22 kg

DRUGS (9)
  1. BACTRAMIN [Concomitant]
     Active Substance: SULFAMETHOXAZOLE\TRIMETHOPRIM
     Indication: INFECTION PROPHYLAXIS
     Dosage: 0.6 G, BID
     Route: 048
  2. METHYLPREDNISOLONE. [Concomitant]
     Active Substance: METHYLPREDNISOLONE
     Indication: PROPHYLAXIS
     Dosage: 22 MG, BID
     Route: 042
     Dates: start: 20170424, end: 20170426
  3. ALEMTUZUMAB [Suspect]
     Active Substance: ALEMTUZUMAB
     Dosage: 22.5 MG
     Route: 041
     Dates: start: 20170425, end: 20170426
  4. CALONAL [Concomitant]
     Active Substance: ACETAMINOPHEN
     Indication: PROPHYLAXIS
     Dosage: 200 MG, BID
     Route: 048
     Dates: start: 20170424, end: 20170427
  5. ALEMTUZUMAB [Suspect]
     Active Substance: ALEMTUZUMAB
     Indication: PRIMARY IMMUNODEFICIENCY SYNDROME
     Dosage: 4.5 MG/DOSE
     Route: 041
     Dates: start: 20170424, end: 20170424
  6. HYDREA [Suspect]
     Active Substance: HYDROXYUREA
     Indication: PRIMARY IMMUNODEFICIENCY SYNDROME
     Dosage: 680 MG, QD
     Route: 048
     Dates: start: 20170424, end: 20170507
  7. ACICLOVIR [Concomitant]
     Active Substance: ACYCLOVIR
     Indication: INFECTION PROPHYLAXIS
     Dosage: 200 MG, QID
     Route: 048
     Dates: start: 20170424, end: 20170524
  8. HALIZON [Concomitant]
     Active Substance: AMPHOTERICIN B
     Indication: INFECTION PROPHYLAXIS
     Dosage: 5 ML, BID
     Route: 048
     Dates: start: 20170622
  9. POLARAMINE [Concomitant]
     Active Substance: DEXCHLORPHENIRAMINE MALEATE
     Indication: PROPHYLAXIS
     Dosage: 2.5 MG, QD
     Route: 042
     Dates: start: 20170424, end: 20170426

REACTIONS (8)
  - Generalised erythema [Recovered/Resolved]
  - Respiratory disorder [Recovering/Resolving]
  - C-reactive protein increased [Recovered/Resolved]
  - Urticaria [Recovering/Resolving]
  - Dyspnoea [Recovering/Resolving]
  - Blood lactate dehydrogenase increased [Recovered/Resolved]
  - Lymphocyte count decreased [Recovered/Resolved]
  - Dysphonia [Recovering/Resolving]

NARRATIVE: CASE EVENT DATE: 20170425
